FAERS Safety Report 8428624-5 (Version None)
Quarter: 2012Q2

REPORT INFORMATION
  Report Type: 
  Country: None (occurrence: None)
  Receive Date: 20120606
  Receipt Date: 20120606
  Transmission Date: 20120825
  Serious: Yes (Other)
  Sender: FDA-Public Use
  Company Number: None

PATIENT
  Sex: Female

DRUGS (2)
  1. PROZAC [Suspect]
     Indication: DEPRESSION
     Dosage: 40MG QD, P.O
     Route: 048
  2. PROZAC [Suspect]
     Indication: ANXIETY
     Dosage: 40MG QD, P.O
     Route: 048

REACTIONS (4)
  - CONDITION AGGRAVATED [None]
  - ANGER [None]
  - DRUG INEFFECTIVE [None]
  - DEPRESSION [None]
